FAERS Safety Report 9906383 (Version 3)
Quarter: 2015Q3

REPORT INFORMATION
  Report Type: Spontaneous
  Country: US (occurrence: US)
  Receive Date: 20140218
  Receipt Date: 20150811
  Transmission Date: 20151125
  Serious: No
  Sender: FDA-Public Use
  Company Number: US-GILEAD-2012-0051679

PATIENT
  Age: 11 Year
  Sex: Female

DRUGS (6)
  1. VENTAVIS [Suspect]
     Active Substance: ILOPROST
  2. LETAIRIS [Suspect]
     Active Substance: AMBRISENTAN
     Indication: PULMONARY HYPERTENSION
     Dosage: 5 MG, UNK
     Route: 048
     Dates: start: 20120110
  3. LETAIRIS [Suspect]
     Active Substance: AMBRISENTAN
     Indication: TRANSPOSITION OF THE GREAT VESSELS
  4. REVATIO [Concomitant]
     Active Substance: SILDENAFIL CITRATE
  5. LETAIRIS [Suspect]
     Active Substance: AMBRISENTAN
     Indication: INTERSTITIAL LUNG DISEASE
  6. LETAIRIS [Suspect]
     Active Substance: AMBRISENTAN
     Indication: PSYCHOMOTOR SKILLS IMPAIRED

REACTIONS (1)
  - Fatigue [Unknown]
